FAERS Safety Report 5682192-X (Version None)
Quarter: 2008Q1

REPORT INFORMATION
  Report Type: 
  Country: None (occurrence: None)
  Receive Date: 20080325
  Receipt Date: 20080310
  Transmission Date: 20080703
  Serious: Yes (Hospitalization)
  Sender: FDA-Public Use
  Company Number: 2008AL001662

PATIENT
  Age: 24 Year
  Sex: Female

DRUGS (1)
  1. CLONAZEPAM [Suspect]
     Indication: AGITATION
     Dosage: 60 MG TID PO
     Route: 048

REACTIONS (13)
  - AGITATION [None]
  - ALCOHOLISM [None]
  - DEPRESSED MOOD [None]
  - DRUG ABUSE [None]
  - DRUG DEPENDENCE [None]
  - DRUG TOLERANCE [None]
  - DRUG WITHDRAWAL SYNDROME [None]
  - IMPULSIVE BEHAVIOUR [None]
  - INSOMNIA [None]
  - IRRITABILITY [None]
  - SELF-MEDICATION [None]
  - SYNCOPE [None]
  - TENSION [None]
